FAERS Safety Report 7257071-7 (Version None)
Quarter: 2011Q1

REPORT INFORMATION
  Report Type: 
  Country: None (occurrence: None)
  Receive Date: 20110129
  Receipt Date: 20100817
  Transmission Date: 20110831
  Serious: No
  Sender: FDA-Public Use
  Company Number: US-ABBOTT-10P-163-0664380-00

PATIENT
  Age: 64 Year
  Sex: Female

DRUGS (12)
  1. CIPROFLOZACIN [Concomitant]
     Indication: PRODUCT USED FOR UNKNOWN INDICATION
  2. TRIAMTERENE AND HYDROCHLOROTHIAZIDE [Concomitant]
     Indication: PRODUCT USED FOR UNKNOWN INDICATION
  3. DARVOCET-N 100 [Concomitant]
     Indication: PRODUCT USED FOR UNKNOWN INDICATION
  4. CYMBALTA [Concomitant]
     Indication: PRODUCT USED FOR UNKNOWN INDICATION
  5. CALCIUM VIT D [Concomitant]
     Indication: PRODUCT USED FOR UNKNOWN INDICATION
  6. VITAMIN B COMPLEX CAP [Concomitant]
     Indication: PRODUCT USED FOR UNKNOWN INDICATION
  7. IRON [Concomitant]
     Indication: PRODUCT USED FOR UNKNOWN INDICATION
  8. BENADRYL [Concomitant]
     Indication: PRODUCT USED FOR UNKNOWN INDICATION
  9. HUMIRA [Suspect]
     Indication: CROHN'S DISEASE
     Dates: start: 20100501
  10. BONIVA [Concomitant]
     Indication: PRODUCT USED FOR UNKNOWN INDICATION
  11. MERCAPTOPURINE [Concomitant]
     Indication: PRODUCT USED FOR UNKNOWN INDICATION
  12. PROBIOTICS [Concomitant]
     Indication: PRODUCT USED FOR UNKNOWN INDICATION

REACTIONS (2)
  - SKIN REACTION [None]
  - NIGHT SWEATS [None]
